FAERS Safety Report 9456905 (Version 1)
Quarter: 2013Q3

REPORT INFORMATION
  Report Type: Spontaneous
  Country: US (occurrence: US)
  Receive Date: 20130813
  Receipt Date: 20130813
  Transmission Date: 20140515
  Serious: Yes (Other)
  Sender: FDA-Public Use
  Company Number: US-TEVA-425477USA

PATIENT
  Sex: Female

DRUGS (1)
  1. AVIANE [Suspect]

REACTIONS (2)
  - Deafness [Unknown]
  - Tinnitus [Unknown]
